FAERS Safety Report 7634377-0 (Version None)
Quarter: 2011Q3

REPORT INFORMATION
  Report Type: 
  Country: None (occurrence: None)
  Receive Date: 20110725
  Receipt Date: 20091002
  Transmission Date: 20111222
  Serious: Yes (Death, Other)
  Sender: FDA-Public Use
  Company Number: US-BAYER-200930937NA

PATIENT
  Age: 57 Year
  Sex: Male
  Weight: 78.685 kg

DRUGS (37)
  1. MAGNEVIST [Suspect]
     Dates: start: 20050622, end: 20050622
  2. MAGNEVIST [Suspect]
     Dosage: UNK UNK, ONCE
     Dates: start: 20060627, end: 20060627
  3. SEVELAMER [Concomitant]
  4. LISINOPRIL [Concomitant]
  5. LIPITOR [Concomitant]
  6. WARFARIN [Concomitant]
  7. NIFEDIPINE [Concomitant]
  8. AMLODIPINE [Concomitant]
  9. SPIRONOLACTONE [Concomitant]
  10. ACETYLSALICYLIC ACID SRT [Concomitant]
  11. HEPARIN [Concomitant]
  12. CLOPIDOGREL [Concomitant]
  13. DARBEPOETIN ALFA [Concomitant]
  14. MAGNEVIST [Suspect]
     Route: 042
     Dates: start: 20060221, end: 20060221
  15. MOMETASONE FUROATE [Concomitant]
  16. SERTRALINE HYDROCHLORIDE [Concomitant]
  17. REGULAR INSULIN [Concomitant]
     Indication: DIABETES MELLITUS
     Dosage: APPROX. 70 UNITS PER NIGHT INTRAPERITONEALLY
     Route: 033
  18. METOLAZONE [Concomitant]
  19. EPOGEN [Concomitant]
  20. FERROUS SULFATE TAB [Concomitant]
  21. FUROSEMIDE [Concomitant]
  22. NEPHROVITE [VIT C,VIT H,B5,B12,B9,B3,B6,B2,B1 HCL] [Concomitant]
  23. FERROUS SULFATE TAB [Concomitant]
  24. MAGNEVIST [Suspect]
     Indication: NUCLEAR MAGNETIC RESONANCE IMAGING BRAIN
     Dates: start: 20050413, end: 20050413
  25. PROPOXYPHENE HYDROCHLORIDE [Concomitant]
  26. HYDRALAZINE HCL [Concomitant]
  27. DILTIAZEM [Concomitant]
  28. HYDRALAZINE HCL [Concomitant]
  29. DIOVAN [Concomitant]
  30. FERROUS GLUCONATE [Concomitant]
  31. MAGNEVIST [Suspect]
     Indication: NUCLEAR MAGNETIC RESONANCE IMAGING
     Dates: start: 20020424, end: 20020424
  32. CIPROFLOXACIN HCL [Concomitant]
     Indication: CATHETER SITE INFECTION
     Dates: start: 20071001, end: 20071115
  33. RENAGEL [Concomitant]
  34. MAGNEVIST [Suspect]
     Dates: start: 20040122, end: 20040122
  35. ARANESP [Concomitant]
     Dosage: 50 ?G (DAILY DOSE), OW,
  36. SIMVASTATIN [Concomitant]
  37. PHOSLO [Concomitant]

REACTIONS (24)
  - SKIN PLAQUE [None]
  - MUSCLE FIBROSIS [None]
  - OEDEMA PERIPHERAL [None]
  - NEPHROGENIC SYSTEMIC FIBROSIS [None]
  - SKIN EXFOLIATION [None]
  - ERYTHEMA [None]
  - SKIN FIBROSIS [None]
  - HYPOKINESIA [None]
  - HYPOAESTHESIA [None]
  - SKIN INDURATION [None]
  - ABASIA [None]
  - GAIT DISTURBANCE [None]
  - MUSCLE CONTRACTURE [None]
  - MYOCARDIAL FIBROSIS [None]
  - NEPHROCALCINOSIS [None]
  - SKIN HYPERTROPHY [None]
  - PULMONARY FIBROSIS [None]
  - ARTHRALGIA [None]
  - SKIN LESION [None]
  - SKIN DISCOLOURATION [None]
  - DRY SKIN [None]
  - PRURITUS [None]
  - JOINT RANGE OF MOTION DECREASED [None]
  - MUSCULAR WEAKNESS [None]
